FAERS Safety Report 7436343-7 (Version None)
Quarter: 2011Q2

REPORT INFORMATION
  Report Type: 
  Country: None (occurrence: None)
  Receive Date: 20110426
  Receipt Date: 20110413
  Transmission Date: 20111010
  Serious: No
  Sender: FDA-Public Use
  Company Number: US-BIOGENIDEC-2010BI022133

PATIENT
  Age: 55 Year
  Sex: Female

DRUGS (1)
  1. TYSABRI [Suspect]
     Indication: MULTIPLE SCLEROSIS
     Route: 042
     Dates: start: 20100323

REACTIONS (11)
  - ARTHRALGIA [None]
  - SWELLING [None]
  - MUSCULOSKELETAL STIFFNESS [None]
  - FATIGUE [None]
  - PAIN IN EXTREMITY [None]
  - MULTIPLE SCLEROSIS RELAPSE [None]
  - HEADACHE [None]
  - DIZZINESS [None]
  - MULTIPLE SCLEROSIS [None]
  - ASTHENIA [None]
  - HOT FLUSH [None]
